FAERS Safety Report 8264124-3 (Version None)
Quarter: 2012Q2

REPORT INFORMATION
  Report Type: 
  Country: None (occurrence: None)
  Receive Date: 20120406
  Receipt Date: 20120330
  Transmission Date: 20120825
  Serious: No
  Sender: FDA-Public Use
  Company Number: US-BIOGENIDEC-2012BI011437

PATIENT
  Age: 65 Year
  Sex: Female

DRUGS (3)
  1. TYSABRI [Suspect]
     Indication: MULTIPLE SCLEROSIS
     Route: 042
     Dates: start: 20100528
  2. AVONEX [Concomitant]
     Route: 030
     Dates: start: 20061106
  3. AVONEX [Concomitant]
     Indication: MULTIPLE SCLEROSIS
     Route: 030
     Dates: start: 19981201, end: 20060515

REACTIONS (7)
  - ROTATOR CUFF SYNDROME [None]
  - FALL [None]
  - WRIST FRACTURE [None]
  - FATIGUE [None]
  - INFLUENZA [None]
  - LARYNGITIS [None]
  - PNEUMONIA [None]
